FAERS Safety Report 8584965-2 (Version None)
Quarter: 2012Q3

REPORT INFORMATION
  Report Type: 
  Country: None (occurrence: None)
  Receive Date: 20120730
  Receipt Date: 20120717
  Transmission Date: 20120928
  Serious: Yes (Hospitalization)
  Sender: FDA-Public Use
  Company Number: IMP_05939_2012

PATIENT
  Age: 65 Year
  Sex: Female

DRUGS (11)
  1. TORSEMIDE [Concomitant]
  2. METHOTREXATE [Concomitant]
  3. CHLOROQUINE PHOSPHATE [Suspect]
     Indication: RHEUMATOID ARTHRITIS
     Dosage: 250 MG QD
  4. LEFLUNOMIDE [Concomitant]
  5. NAPROXEN [Concomitant]
  6. AZATHIOPRINE SODIUM [Concomitant]
  7. PANTOPRAZOLE [Concomitant]
  8. GOLD COMPOUNDS [Concomitant]
  9. OXYCODONE [Concomitant]
  10. PREDNISOLONE [Concomitant]
  11. NEBIVOLOL [Concomitant]

REACTIONS (9)
  - MACULOPATHY [None]
  - BLINDNESS [None]
  - MITRAL VALVE INCOMPETENCE [None]
  - BUNDLE BRANCH BLOCK [None]
  - ANGINA PECTORIS [None]
  - RETINOPATHY [None]
  - SYNCOPE [None]
  - SYNOVITIS [None]
  - ATRIOVENTRICULAR BLOCK COMPLETE [None]
